FAERS Safety Report 9904259 (Version 1)
Quarter: 2014Q1

REPORT INFORMATION
  Report Type: Spontaneous
  Country: NL (occurrence: NL)
  Receive Date: 20140218
  Receipt Date: 20140218
  Transmission Date: 20141002
  Serious: Yes (Hospitalization)
  Sender: FDA-Public Use
  Company Number: NL-AMGEN-NLDSP2012085132

PATIENT
  Age: 60 Year
  Sex: Female

DRUGS (2)
  1. NEULASTA [Suspect]
     Indication: PROPHYLAXIS
     Dosage: 6 MG, 1X3W
     Route: 058
     Dates: start: 20120510
  2. ARANESP [Suspect]
     Indication: ANAEMIA
     Dosage: 500 MUG, 1X3W
     Route: 058
     Dates: start: 20120713

REACTIONS (2)
  - Investigation [Unknown]
  - Injection site pain [Unknown]
